FAERS Safety Report 7240671-8 (Version None)
Quarter: 2011Q1

REPORT INFORMATION
  Report Type: 
  Country: None (occurrence: None)
  Receive Date: 20110124
  Receipt Date: 20101006
  Transmission Date: 20110831
  Serious: Yes (Hospitalization)
  Sender: FDA-Public Use
  Company Number: US-KINGPHARMUSA00001-K201001250

PATIENT
  Sex: Female

DRUGS (1)
  1. EPIPEN [Suspect]
     Indication: ANAPHYLACTIC REACTION
     Dosage: 0.3 MG, TWICE
     Route: 030
     Dates: start: 20100918, end: 20100918

REACTIONS (2)
  - INJECTION SITE HAEMORRHAGE [None]
  - DRUG INEFFECTIVE [None]
